FAERS Safety Report 9300633 (Version 2)
Quarter: 2013Q3

REPORT INFORMATION
  Report Type: Spontaneous
  Country: FR (occurrence: FR)
  Receive Date: 20130521
  Receipt Date: 20130910
  Transmission Date: 20140515
  Serious: Yes (Life-Threatening, Hospitalization, Other)
  Sender: FDA-Public Use
  Company Number: FR-AMGEN-FRASP2013035646

PATIENT
  Age: 43 Year
  Sex: Male

DRUGS (2)
  1. ENBREL [Suspect]
     Indication: ANKYLOSING SPONDYLITIS
     Dosage: 50 MG, WEEKLY
     Route: 058
     Dates: start: 20130426, end: 20130428
  2. BI-PROFENID [Concomitant]
     Dosage: UNK
     Route: 048

REACTIONS (4)
  - Renal failure acute [Recovering/Resolving]
  - Malaise [Unknown]
  - Cryoglobulinaemia [Recovering/Resolving]
  - Plasmacytosis [Unknown]
